FAERS Safety Report 12463244 (Version 1)
Quarter: 2016Q2

REPORT INFORMATION
  Report Type: Spontaneous
  Country: DE (occurrence: DE)
  Receive Date: 20160614
  Receipt Date: 20160614
  Transmission Date: 20160815
  Serious: Yes (Death, Life-Threatening, Other)
  Sender: FDA-Public Use
  Company Number: DE-ROCHE-1755478

PATIENT
  Age: 56 Year
  Sex: Female

DRUGS (12)
  1. CLEXANE [Concomitant]
     Active Substance: ENOXAPARIN SODIUM
     Route: 065
  2. PANTOZOL [Concomitant]
     Active Substance: PANTOPRAZOLE SODIUM
     Route: 048
     Dates: start: 2015
  3. FAVISTAN [Concomitant]
     Route: 065
  4. XELODA [Concomitant]
     Active Substance: CAPECITABINE
     Dosage: DAY 1 - 14 OF EVERY 21 DAY CYCLE
     Route: 048
     Dates: start: 20160201, end: 20160225
  5. IDEOS [Concomitant]
     Active Substance: CALCIUM CARBONATE\CHOLECALCIFEROL
     Dosage: 500 MG/ 400 IU
     Route: 048
     Dates: start: 20151207
  6. PACLITAXEL. [Suspect]
     Active Substance: PACLITAXEL
     Indication: BREAST CANCER
     Route: 065
  7. NOVALGIN [Concomitant]
     Active Substance: METAMIZOLE SODIUM
     Indication: PAIN
     Route: 048
     Dates: start: 20151222
  8. TOREM [Concomitant]
     Active Substance: TORSEMIDE
     Route: 065
  9. PALLADON [Concomitant]
     Active Substance: HYDROMORPHONE
     Route: 065
  10. XGEVA [Concomitant]
     Active Substance: DENOSUMAB
     Indication: METASTASES TO BONE
     Route: 058
     Dates: start: 20160111, end: 201602
  11. ARCOXIA [Concomitant]
     Active Substance: ETORICOXIB
     Route: 065
  12. AVASTIN [Suspect]
     Active Substance: BEVACIZUMAB
     Indication: BREAST CANCER
     Route: 042
     Dates: start: 20160201, end: 20160222

REACTIONS (3)
  - Asthenia [Fatal]
  - Peritonitis [Recovering/Resolving]
  - Large intestine perforation [Recovered/Resolved]

NARRATIVE: CASE EVENT DATE: 20160217
